FAERS Safety Report 15968274 (Version 1)
Quarter: 2019Q1

REPORT INFORMATION
  Report Type: Spontaneous
  Country: PT (occurrence: PT)
  Receive Date: 20190215
  Receipt Date: 20190215
  Transmission Date: 20190418
  Serious: Yes (Hospitalization)
  Sender: FDA-Public Use
  Company Number: PT-GILEAD-2019-0390698

PATIENT
  Age: 40 Year
  Sex: Female

DRUGS (1)
  1. CAYSTON [Suspect]
     Active Substance: AZTREONAM
     Indication: BRONCHIECTASIS
     Dosage: 75 MG TID 1 MONTH ON, 1 MONTH OFF
     Route: 055
     Dates: start: 201812

REACTIONS (2)
  - Infective exacerbation of bronchiectasis [Unknown]
  - Off label use [Not Recovered/Not Resolved]
